FAERS Safety Report 17859358 (Version 11)
Quarter: 2022Q1

REPORT INFORMATION
  Report Type: Report from Study
  Country: CN (occurrence: CN)
  Receive Date: 20200604
  Receipt Date: 20220107
  Transmission Date: 20220423
  Serious: Yes (Hospitalization)
  Sender: FDA-Public Use
  Company Number: None

PATIENT
  Age: 66 Year
  Sex: Female
  Weight: 58 kg

DRUGS (24)
  1. LETROZOLE [Suspect]
     Active Substance: LETROZOLE
     Indication: HER2 negative breast cancer
     Dosage: 2.5 MG, QD
     Route: 065
     Dates: start: 20190404
  2. PLACEBO [Suspect]
     Active Substance: UNSPECIFIED INGREDIENT
     Indication: HER2 negative breast cancer
     Dosage: UNK
     Route: 048
     Dates: start: 20190404
  3. LEVAMLODIPINE BESYLATE [Concomitant]
     Active Substance: LEVAMLODIPINE BESYLATE
     Indication: Hypertension
     Dosage: UNK
     Route: 065
     Dates: start: 20190311
  4. PROMETHAZINE [Concomitant]
     Active Substance: PROMETHAZINE HYDROCHLORIDE
     Indication: Hypersensitivity
     Dosage: UNK
     Route: 065
     Dates: start: 20200529, end: 20200529
  5. VITAMIN C [Concomitant]
     Active Substance: ASCORBIC ACID
     Indication: Antiallergic therapy
     Dosage: UNK
     Route: 065
     Dates: start: 20200526, end: 20200601
  6. VITAMIN C [Concomitant]
     Active Substance: ASCORBIC ACID
     Indication: Hypersensitivity
  7. CALCIUM GLUCONATE [Concomitant]
     Active Substance: CALCIUM GLUCONATE
     Indication: Antiallergic therapy
     Dosage: UNK
     Route: 065
     Dates: start: 20200526, end: 20200602
  8. CALCIUM GLUCONATE [Concomitant]
     Active Substance: CALCIUM GLUCONATE
     Indication: Hypersensitivity
  9. GLUTATHIONE [Concomitant]
     Active Substance: GLUTATHIONE
     Indication: Aspartate aminotransferase increased
     Dosage: UNK
     Route: 065
     Dates: start: 20191218
  10. GLUTATHIONE [Concomitant]
     Active Substance: GLUTATHIONE
     Dosage: UNK
     Route: 065
     Dates: start: 20200512, end: 20200602
  11. URSODIOL [Concomitant]
     Active Substance: URSODIOL
     Indication: Blood bilirubin increased
     Dosage: UNK
     Route: 065
     Dates: start: 20191218
  12. URSODIOL [Concomitant]
     Active Substance: URSODIOL
     Indication: Gamma-glutamyltransferase increased
  13. OXACILLIN SODIUM [Concomitant]
     Active Substance: OXACILLIN SODIUM
     Indication: Biliary tract infection
     Dosage: UNK
     Route: 065
     Dates: start: 20200518, end: 20200525
  14. CLINDAMYCIN PHOSPHATE [Concomitant]
     Active Substance: CLINDAMYCIN PHOSPHATE
     Indication: Biliary tract infection
     Dosage: UNK
     Route: 065
     Dates: start: 20200528, end: 20200602
  15. ALBUMIN PREPARED FROM HUMAN PLASMA [Concomitant]
     Indication: Hypoalbuminaemia
     Dosage: UNK
     Route: 065
     Dates: start: 20200529, end: 20200602
  16. PENICILLIN G [Concomitant]
     Active Substance: PENICILLIN G
     Indication: Antiinflammatory therapy
     Dosage: UNK
     Route: 065
     Dates: start: 20200518, end: 20200518
  17. DESONIDE [Concomitant]
     Active Substance: DESONIDE
     Indication: Antiallergic therapy
     Dosage: UNK
     Route: 065
     Dates: start: 20200526, end: 20200526
  18. SPIRONOLACTONE [Concomitant]
     Active Substance: SPIRONOLACTONE
     Indication: Polyuria
     Dosage: UNK
     Route: 065
     Dates: start: 20200602, end: 20200602
  19. ZOLEDRONIC ACID [Concomitant]
     Active Substance: ZOLEDRONIC ACID
     Indication: Prophylaxis
     Dosage: UNK
     Route: 065
     Dates: start: 20200611, end: 20200611
  20. BICYCLOL [Concomitant]
     Active Substance: BICYCLOL
     Indication: Aspartate aminotransferase increased
     Dosage: UNK
     Route: 065
     Dates: start: 20191218
  21. HERBALS\DIAMMONIUM GLYCYRRHIZINATE [Concomitant]
     Active Substance: HERBALS\DIAMMONIUM GLYCYRRHIZINATE
     Indication: Aspartate aminotransferase increased
     Dosage: UNK
     Route: 065
     Dates: start: 20191218
  22. ADEMETIONINE [Concomitant]
     Active Substance: ADEMETIONINE
     Indication: Hepatobiliary disorder prophylaxis
     Dosage: UNK
     Route: 065
     Dates: start: 20191219
  23. LEVOCETIRIZINE HYDROCHLORIDE [Concomitant]
     Active Substance: LEVOCETIRIZINE HYDROCHLORIDE
     Indication: Antiallergic therapy
     Dosage: 10 ML, QD
     Route: 048
     Dates: start: 20200525
  24. PROMETHAZINE HYDROCHLORIDE [Concomitant]
     Active Substance: PROMETHAZINE HYDROCHLORIDE
     Indication: Antiallergic therapy
     Dosage: 10 ML, QD
     Route: 042
     Dates: start: 20200529

REACTIONS (1)
  - Anaemia [Not Recovered/Not Resolved]

NARRATIVE: CASE EVENT DATE: 20200527
